FAERS Safety Report 6395676-6 (Version None)
Quarter: 2009Q4

REPORT INFORMATION
  Report Type: 
  Country: None (occurrence: None)
  Receive Date: 20091009
  Receipt Date: 20090925
  Transmission Date: 20100525
  Serious: Yes (Hospitalization)
  Sender: FDA-Public Use
  Company Number: PHHY2009CL41483

PATIENT
  Age: 55 Year
  Sex: Male

DRUGS (1)
  1. TAREG D [Suspect]
     Indication: HYPERTENSION

REACTIONS (1)
  - SURGERY [None]
